FAERS Safety Report 5926525-5 (Version None)
Quarter: 2008Q4

REPORT INFORMATION
  Report Type: 
  Country: None (occurrence: None)
  Receive Date: 20081022
  Receipt Date: 20080918
  Transmission Date: 20090506
  Serious: Yes (Death, Hospitalization)
  Sender: FDA-Public Use
  Company Number: PH-BRISTOL-MYERS SQUIBB COMPANY-14341622

PATIENT
  Age: 62 Year
  Sex: Female

DRUGS (3)
  1. APROVEL TABS 150 MG [Suspect]
     Indication: HYPERTENSION
     Route: 048
     Dates: start: 20080613
  2. SIMVASTATIN [Suspect]
     Indication: HYPERLIPIDAEMIA
     Route: 048
     Dates: start: 20080529
  3. ESSENTIALE FORTE [Suspect]
     Indication: HEPATIC PAIN
     Dosage: CAPSULE FORM
     Route: 048
     Dates: start: 20080730

REACTIONS (3)
  - ABDOMINAL DISTENSION [None]
  - HEPATOTOXICITY [None]
  - JAUNDICE [None]
